FAERS Safety Report 10283539 (Version 1)
Quarter: 2014Q3

REPORT INFORMATION
  Report Type: Spontaneous
  Country: US (occurrence: US)
  Receive Date: 20140708
  Receipt Date: 20140708
  Transmission Date: 20150326
  Serious: Yes (Hospitalization)
  Sender: FDA-Public Use
  Company Number: US-ROCHE-1431124

PATIENT
  Sex: Male

DRUGS (4)
  1. CLONAZEPAM. [Suspect]
     Active Substance: CLONAZEPAM
     Indication: CONVULSION
     Route: 065
  2. LAMICTAL [Concomitant]
     Active Substance: LAMOTRIGINE
     Indication: CONVULSION
     Dosage: IN MORNING
     Route: 048
  3. KLONOPIN [Suspect]
     Active Substance: CLONAZEPAM
     Indication: CONVULSION
     Dosage: AT NIGHT
     Route: 048
     Dates: start: 2004
  4. LAMICTAL [Concomitant]
     Active Substance: LAMOTRIGINE
     Dosage: IN EVENING
     Route: 048

REACTIONS (2)
  - Restless legs syndrome [Unknown]
  - Arthritis infective [Recovered/Resolved]
